FAERS Safety Report 22225646 (Version 1)
Quarter: 2023Q2

REPORT INFORMATION
  Report Type: Spontaneous
  Country: JP (occurrence: JP)
  Receive Date: 20230418
  Receipt Date: 20230418
  Transmission Date: 20230722
  Serious: Yes (Life-Threatening)
  Sender: FDA-Public Use
  Company Number: JP-SA-2022SA515473

PATIENT
  Age: 44 Year
  Sex: Female
  Weight: 78.9 kg

DRUGS (13)
  1. DUPIXENT [Suspect]
     Active Substance: DUPILUMAB
     Indication: Chronic eosinophilic rhinosinusitis
     Dosage: 300 MG, QOW
     Route: 058
     Dates: start: 20220121
  2. BILASTINE [Concomitant]
     Active Substance: BILASTINE
     Indication: Rhinitis allergic
     Dosage: 20 MG, QD
     Route: 048
     Dates: start: 201801
  3. BILASTINE [Concomitant]
     Active Substance: BILASTINE
     Indication: Chronic eosinophilic rhinosinusitis
  4. MONTELUKAST SODIUM [Concomitant]
     Active Substance: MONTELUKAST SODIUM
     Indication: Rhinitis allergic
     Dosage: 10 MG, QD
     Route: 048
     Dates: start: 201801
  5. MONTELUKAST SODIUM [Concomitant]
     Active Substance: MONTELUKAST SODIUM
     Indication: Chronic eosinophilic rhinosinusitis
  6. CARBOCYSTEINE [Concomitant]
     Active Substance: CARBOCYSTEINE
     Indication: Rhinitis allergic
     Dosage: 500 MG, BID
     Route: 048
     Dates: start: 201801
  7. CARBOCYSTEINE [Concomitant]
     Active Substance: CARBOCYSTEINE
     Indication: Chronic eosinophilic rhinosinusitis
  8. SYMBICORT [Concomitant]
     Active Substance: BUDESONIDE\FORMOTEROL FUMARATE DIHYDRATE
     Indication: Rhinitis allergic
     Dosage: 2 DF, BID
     Route: 055
     Dates: start: 201801
  9. SYMBICORT [Concomitant]
     Active Substance: BUDESONIDE\FORMOTEROL FUMARATE DIHYDRATE
     Indication: Chronic eosinophilic rhinosinusitis
  10. NASONEX [Concomitant]
     Active Substance: MOMETASONE FUROATE
     Indication: Rhinitis allergic
     Dosage: 2 DF, QD
     Route: 045
     Dates: start: 201801
  11. NASONEX [Concomitant]
     Active Substance: MOMETASONE FUROATE
     Indication: Chronic eosinophilic rhinosinusitis
  12. PREDONINE [Concomitant]
     Active Substance: PREDNISOLONE
     Indication: Rhinitis allergic
     Dosage: 1 MG, 1 DOSE/2 DAYS (4 WEEKS)
     Route: 048
     Dates: start: 20220121, end: 202202
  13. PREDONINE [Concomitant]
     Active Substance: PREDNISOLONE
     Indication: Chronic eosinophilic rhinosinusitis

REACTIONS (1)
  - Platelet count decreased [Recovered/Resolved]

NARRATIVE: CASE EVENT DATE: 20221205
